FAERS Safety Report 5211873-7 (Version None)
Quarter: 2007Q1

REPORT INFORMATION
  Report Type: 
  Country: None (occurrence: None)
  Receive Date: 20070116
  Receipt Date: 20070109
  Transmission Date: 20070707
  Serious: Yes (Hospitalization, Other)
  Sender: FDA-Public Use
  Company Number: HQWYE394217MAR06

PATIENT
  Age: 57 Year
  Sex: Female

DRUGS (3)
  1. RAPAMUNE [Suspect]
     Indication: PROPHYLAXIS AGAINST TRANSPLANT REJECTION
     Dosage: 4 MG 1X PER 1 DAY ORAL
     Route: 048
     Dates: start: 20051124, end: 20060608
  2. LESCOL [Concomitant]
  3. IMOVANE (ZOPICLONE) [Concomitant]

REACTIONS (2)
  - COLON CANCER [None]
  - MICROCYTIC ANAEMIA [None]
